FAERS Safety Report 4665996-1 (Version None)
Quarter: 2005Q2

REPORT INFORMATION
  Report Type: 
  Country: None (occurrence: None)
  Receive Date: 20050517
  Receipt Date: 20050517
  Transmission Date: 20051028
  Serious: Yes (Hospitalization)
  Sender: FDA-Public Use
  Company Number: None

PATIENT
  Age: 62 Year
  Sex: Male
  Weight: 147.419 kg

DRUGS (1)
  1. LISINOPRIL [Suspect]
     Indication: HYPERTENSION
     Dosage: 40 MG DAILY ORAL
     Route: 048
     Dates: start: 20020724, end: 20050426

REACTIONS (8)
  - ANAEMIA [None]
  - CORONARY ARTERY DISEASE [None]
  - CORONARY ARTERY SURGERY [None]
  - DIABETES MELLITUS NON-INSULIN-DEPENDENT [None]
  - HYPERLIPIDAEMIA [None]
  - RENAL FAILURE ACUTE [None]
  - RETINOPATHY [None]
  - VENOUS INSUFFICIENCY [None]
